APPROVED DRUG PRODUCT: CARMUSTINE
Active Ingredient: CARMUSTINE
Strength: 100MG/VIAL
Dosage Form/Route: INJECTABLE;INJECTION
Application: A214117 | Product #001
Applicant: ACCORD HEALTHCARE INC
Approved: Dec 27, 2022 | RLD: No | RS: No | Type: DISCN